FAERS Safety Report 8840108 (Version 1)
Quarter: 2012Q4

REPORT INFORMATION
  Report Type: 
  Country: US (occurrence: US)
  Receive Date: 20121015
  Receipt Date: 20121015
  Transmission Date: 20130627
  Serious: Yes (Death, Hospitalization)
  Sender: FDA-Public Use
  Company Number: US-ASTRAZENECA-2012SE77767

PATIENT
  Sex: Male

DRUGS (6)
  1. BRILINTA [Suspect]
     Indication: ACUTE MYOCARDIAL INFARCTION
     Route: 048
     Dates: start: 20120903
  2. BRILINTA [Suspect]
     Indication: ACUTE MYOCARDIAL INFARCTION
     Route: 048
  3. ASPIRIN [Concomitant]
     Dates: start: 20120903
  4. ASPIRIN [Concomitant]
  5. METOPROLOL [Concomitant]
     Route: 042
  6. INTEGRILIN [Concomitant]

REACTIONS (3)
  - Pulmonary embolism [Fatal]
  - Hypoxia [Fatal]
  - Intestinal obstruction [Unknown]
